FAERS Safety Report 23226647 (Version 11)
Quarter: 2024Q2

REPORT INFORMATION
  Report Type: Report from Study
  Country: CL (occurrence: CL)
  Receive Date: 20231124
  Receipt Date: 20240404
  Transmission Date: 20240715
  Serious: Yes (Other)
  Sender: FDA-Public Use
  Company Number: CL-002147023-NVSC2023CL230900

PATIENT
  Age: 43 Year
  Sex: Female

DRUGS (5)
  1. COSENTYX [Suspect]
     Active Substance: SECUKINUMAB
     Indication: Psoriatic arthropathy
     Dosage: 300 MG, QMO
     Route: 058
     Dates: start: 20231016
  2. COSENTYX [Suspect]
     Active Substance: SECUKINUMAB
     Dosage: UNK
     Route: 065
     Dates: start: 20231023
  3. COSENTYX [Suspect]
     Active Substance: SECUKINUMAB
     Dosage: UNK
     Route: 065
  4. COSENTYX [Suspect]
     Active Substance: SECUKINUMAB
     Dosage: 300 MG, (EVERY 7 DAYS, CHARGE DOSE)
     Route: 065
  5. COSENTYX [Suspect]
     Active Substance: SECUKINUMAB
     Dosage: 300 MG, QMO
     Route: 065

REACTIONS (17)
  - Rib fracture [Recovering/Resolving]
  - Cough [Not Recovered/Not Resolved]
  - Tracheitis [Not Recovered/Not Resolved]
  - Fatigue [Unknown]
  - Somnolence [Unknown]
  - Bronchitis [Unknown]
  - Arthralgia [Unknown]
  - Dyspnoea [Unknown]
  - Pain [Unknown]
  - Respiratory symptom [Unknown]
  - Memory impairment [Unknown]
  - Device leakage [Unknown]
  - Device difficult to use [Unknown]
  - Product container seal issue [Unknown]
  - Product dose omission issue [Unknown]
  - Product prescribing error [Unknown]
  - Off label use [Unknown]

NARRATIVE: CASE EVENT DATE: 20231016
